FAERS Safety Report 18676590 (Version 1)
Quarter: 2020Q4

REPORT INFORMATION
  Report Type: Spontaneous
  Country: US (occurrence: US)
  Receive Date: 20201229
  Receipt Date: 20201229
  Transmission Date: 20210114
  Serious: Yes (Hospitalization, Other)
  Sender: FDA-Public Use
  Company Number: US-PACIRA-2020000557

PATIENT

DRUGS (3)
  1. NORMAL SALINE [Concomitant]
     Active Substance: SODIUM CHLORIDE
     Indication: TRANSVERSUS ABDOMINIS PLANE BLOCK
     Dosage: NORMAL SALINE MIXED WITH EXPAREL AND 0.25% BUPIVACAINE
     Route: 065
  2. EXPAREL [Suspect]
     Active Substance: BUPIVACAINE
     Indication: TRANSVERSUS ABDOMINIS PLANE BLOCK
     Dosage: EXPAREL MIXED WITH 0.25% BUPIVACAINE AND NORMAL SALINE
     Route: 065
  3. 0.25% BUPIVACAINE [Suspect]
     Active Substance: BUPIVACAINE
     Indication: TRANSVERSUS ABDOMINIS PLANE BLOCK
     Dosage: 0.25% BUPIVACAINE MIXED WITH EXPAREL AND NORMAL SALINE
     Route: 065

REACTIONS (6)
  - Post procedural complication [Unknown]
  - Procedural vomiting [Unknown]
  - Pain [Unknown]
  - Hospitalisation [Unknown]
  - Ileus [Unknown]
  - Procedural nausea [Unknown]
